FAERS Safety Report 8268797-0 (Version None)
Quarter: 2012Q2

REPORT INFORMATION
  Report Type: 
  Country: None (occurrence: None)
  Receive Date: 20120409
  Receipt Date: 20120409
  Transmission Date: 20120825
  Serious: Yes (Other)
  Sender: FDA-Public Use
  Company Number: None

PATIENT
  Age: 81 Year
  Sex: Female
  Weight: 73.028 kg

DRUGS (2)
  1. STEROID [Concomitant]
     Route: 051
  2. LIDOCAINE HYDROCHLORIDE PRESERVATIVE FREE [Suspect]
     Indication: LOCAL ANAESTHESIA
     Dosage: 15CC
     Route: 030
     Dates: start: 20120329, end: 20120329

REACTIONS (2)
  - ASTHENIA [None]
  - OEDEMA PERIPHERAL [None]
